FAERS Safety Report 25539656 (Version 1)
Quarter: 2025Q3

REPORT INFORMATION
  Report Type: Spontaneous
  Country: TR (occurrence: TR)
  Receive Date: 20250710
  Receipt Date: 20250710
  Transmission Date: 20251021
  Serious: Yes (Other)
  Sender: PFIZER
  Company Number: TR-PFIZER INC-202500137628

PATIENT
  Age: 39 Year
  Sex: Female
  Weight: 48 kg

DRUGS (2)
  1. DOSTINEX [Suspect]
     Active Substance: CABERGOLINE
     Indication: Galectin-3 abnormal
     Dates: start: 202409, end: 20250415
  2. IRON POLYMALTOSE [Concomitant]
     Active Substance: IRON POLYMALTOSE

REACTIONS (14)
  - Arrhythmia [Recovering/Resolving]
  - Hypertension [Not Recovered/Not Resolved]
  - Dyspnoea [Not Recovered/Not Resolved]
  - Palpitations [Recovering/Resolving]
  - Pulmonary pain [Not Recovered/Not Resolved]
  - Pain [Recovered/Resolved]
  - Muscle spasms [Not Recovered/Not Resolved]
  - Swollen tongue [Recovering/Resolving]
  - Tongue discomfort [Not Recovered/Not Resolved]
  - General physical health deterioration [Recovered/Resolved]
  - Urine analysis abnormal [Unknown]
  - Drug hypersensitivity [Unknown]
  - Acidosis [Recovering/Resolving]
  - Off label use [Unknown]

NARRATIVE: CASE EVENT DATE: 20240901
